FAERS Safety Report 19862029 (Version 1)
Quarter: 2021Q3

REPORT INFORMATION
  Report Type: Spontaneous
  Country: US (occurrence: US)
  Receive Date: 20210921
  Receipt Date: 20210921
  Transmission Date: 20211014
  Serious: Yes (Other)
  Sender: FDA-Public Use
  Company Number: None

PATIENT
  Age: 24 Year
  Sex: Male
  Weight: 74.6 kg

DRUGS (5)
  1. ERGOCALCIFEROL 1.25MG [Concomitant]
     Active Substance: ERGOCALCIFEROL
     Dates: start: 20210830
  2. BLISTEX LIP BALM [Concomitant]
     Dates: start: 20210902, end: 20210913
  3. OLANZAPINE 5 MG [Concomitant]
     Active Substance: OLANZAPINE
     Dates: start: 20210824, end: 20210909
  4. OLANZAPINE 10MG [Concomitant]
     Active Substance: OLANZAPINE
     Dates: start: 20210910
  5. LAMOTRIGINE. [Suspect]
     Active Substance: LAMOTRIGINE
     Indication: BIPOLAR I DISORDER
     Route: 048
     Dates: start: 20210824, end: 20210915

REACTIONS (10)
  - Chapped lips [None]
  - Lip exfoliation [None]
  - Therapy cessation [None]
  - Lip swelling [None]
  - Oral pain [None]
  - Pain [None]
  - Lip erythema [None]
  - Rash papular [None]
  - Glossodynia [None]
  - Tongue erythema [None]

NARRATIVE: CASE EVENT DATE: 20210913
